FAERS Safety Report 20576516 (Version 2)
Quarter: 2022Q1

REPORT INFORMATION
  Report Type: Spontaneous
  Country: US (occurrence: US)
  Receive Date: 20220310
  Receipt Date: 20220322
  Transmission Date: 20220423
  Serious: Yes (Other)
  Sender: FDA-Public Use
  Company Number: US-TEVA-2022-US-2014106

PATIENT
  Age: 63 Year
  Sex: Male

DRUGS (5)
  1. LISINOPRIL [Suspect]
     Active Substance: LISINOPRIL
     Indication: Cardiac failure chronic
     Route: 065
  2. METOPROLOL [Suspect]
     Active Substance: METOPROLOL
     Indication: Cardiac failure chronic
     Route: 065
  3. SPIRONOLACTONE [Suspect]
     Active Substance: SPIRONOLACTONE
     Indication: Cardiac failure chronic
     Route: 065
  4. FUROSEMIDE [Suspect]
     Active Substance: FUROSEMIDE
     Indication: Cardiac failure chronic
     Route: 065
  5. MIDODRINE [Suspect]
     Active Substance: MIDODRINE
     Indication: Cardiac failure chronic
     Route: 065

REACTIONS (2)
  - Hypotension [Unknown]
  - Drug ineffective [Unknown]
